FAERS Safety Report 7246448-1 (Version None)
Quarter: 2011Q1

REPORT INFORMATION
  Report Type: 
  Country: None (occurrence: None)
  Receive Date: 20110126
  Receipt Date: 20110119
  Transmission Date: 20110831
  Serious: Yes (Hospitalization)
  Sender: FDA-Public Use
  Company Number: US-RB-020931-11

PATIENT
  Sex: Male

DRUGS (1)
  1. SUBOXONE [Suspect]
     Indication: PRODUCT USED FOR UNKNOWN INDICATION
     Dosage: DOSING INFORMATION UNKNOWN
     Route: 065

REACTIONS (6)
  - APPENDIX DISORDER [None]
  - ABDOMINAL PAIN UPPER [None]
  - CONSTIPATION [None]
  - TOOTH LOSS [None]
  - SUBSTANCE ABUSE [None]
  - BACK PAIN [None]
